FAERS Safety Report 25337924 (Version 5)
Quarter: 2025Q4

REPORT INFORMATION
  Report Type: Spontaneous
  Country: US (occurrence: US)
  Receive Date: 20250520
  Receipt Date: 20251021
  Transmission Date: 20260117
  Serious: No
  Sender: CALLIDITAS THERAPEUTICS AB
  Company Number: US-Calliditas-2025CAL01243

PATIENT
  Age: 71 Year
  Sex: Male

DRUGS (12)
  1. TARPEYO [Suspect]
     Active Substance: BUDESONIDE
     Indication: Haematuria
     Route: 048
     Dates: start: 20250503
  2. AMLODIPINE [Concomitant]
     Active Substance: AMLODIPINE BESYLATE
  3. VITAMIN D3 [Concomitant]
     Active Substance: CHOLECALCIFEROL
  4. JARDIANCE [Concomitant]
     Active Substance: EMPAGLIFLOZIN
  5. ENBREL [Concomitant]
     Active Substance: ETANERCEPT
  6. FLUTICASONE [Concomitant]
     Active Substance: FLUTICASONE
  7. LEFLUNOMIDE [Concomitant]
     Active Substance: LEFLUNOMIDE
  8. LOSARTAN [Concomitant]
     Active Substance: LOSARTAN
  9. MELATONIN [Concomitant]
     Active Substance: MELATONIN
  10. MONTELUKAST [Concomitant]
     Active Substance: MONTELUKAST
  11. OFEV [Concomitant]
     Active Substance: NINTEDANIB
  12. SIMVASTATIN [Concomitant]
     Active Substance: SIMVASTATIN

REACTIONS (6)
  - Increased appetite [Recovering/Resolving]
  - Diarrhoea [Recovering/Resolving]
  - Product residue present [Recovering/Resolving]
  - Skin atrophy [Not Recovered/Not Resolved]
  - Increased tendency to bruise [Not Recovered/Not Resolved]
  - Skin laceration [Not Recovered/Not Resolved]

NARRATIVE: CASE EVENT DATE: 20250503
